FAERS Safety Report 10507320 (Version 1)
Quarter: 2014Q4

REPORT INFORMATION
  Report Type: Spontaneous
  Country: US (occurrence: None)
  Receive Date: 20141008
  Receipt Date: 20141008
  Transmission Date: 20150528
  Serious: Yes (Hospitalization)
  Sender: FDA-Public Use
  Company Number: None

PATIENT
  Age: 51 Year
  Sex: Female
  Weight: 45.8 kg

DRUGS (3)
  1. ADRIAMYCIN [Concomitant]
     Active Substance: DOXORUBICIN HYDROCHLORIDE
  2. OLANZAPINE. [Suspect]
     Active Substance: OLANZAPINE
     Dosage: STUDY DRUG 10MG DAILY (COMPLETED FOUR DAYS OF STUDY DRUG FOR A TOTAL OF 40 MG)
  3. CYTOXAN [Concomitant]
     Active Substance: CYCLOPHOSPHAMIDE

REACTIONS (3)
  - Vomiting [None]
  - Nausea [None]
  - Melaena [None]

NARRATIVE: CASE EVENT DATE: 20140929
